FAERS Safety Report 20684505 (Version 6)
Quarter: 2022Q4

REPORT INFORMATION
  Report Type: Spontaneous
  Country: PL (occurrence: PL)
  Receive Date: 20220407
  Receipt Date: 20221219
  Transmission Date: 20230113
  Serious: Yes (Hospitalization, Other)
  Sender: FDA-Public Use
  Company Number: PL-MLMSERVICE-20220324-3449323-1

PATIENT
  Age: 67 Year
  Sex: Female

DRUGS (7)
  1. VENLAFAXINE [Interacting]
     Active Substance: VENLAFAXINE HYDROCHLORIDE
     Indication: Depression
     Dosage: 150 MILLIGRAM, QD
     Route: 065
  2. SERTRALINE [Interacting]
     Active Substance: SERTRALINE HYDROCHLORIDE
     Indication: Depression
     Dosage: 100 MILLIGRAM, BID(100 MILLIGRAM, BID )
     Route: 065
  3. DORZOLAMIDE\TIMOLOL [Interacting]
     Active Substance: DORZOLAMIDE\TIMOLOL
     Indication: Glaucoma
     Dosage: ONE DROP, EACH EYE AT 8 AM AND AT 8 PM
     Route: 047
  4. DORZOLAMIDE\TIMOLOL [Interacting]
     Active Substance: DORZOLAMIDE\TIMOLOL
     Dosage: 2 GTT DROPS, BID(ONE DROP INTO EACH EYE  8 AM AND 8 PM)
     Route: 047
  5. TIMOLOL [Suspect]
     Active Substance: TIMOLOL
     Indication: Glaucoma
     Dosage: 2 DROPS, 1/12 MILLILITRE
  6. BROMAZEPAM [Concomitant]
     Active Substance: BROMAZEPAM
     Indication: Depression
     Dosage: 3 MG, DAILY (3 MILLIGRAM PER DAY)
     Route: 065
  7. DORZOLAMIDE [Concomitant]
     Active Substance: DORZOLAMIDE
     Indication: Glaucoma
     Dosage: 2 DROP, QD,1/12 MILLILITRE

REACTIONS (5)
  - Bradycardia [Unknown]
  - Sinoatrial block [Recovered/Resolved]
  - Drug clearance decreased [Recovered/Resolved]
  - Nodal rhythm [Recovered/Resolved]
  - Drug interaction [Recovered/Resolved]
